FAERS Safety Report 10241425 (Version 1)
Quarter: 2014Q2

REPORT INFORMATION
  Report Type: Spontaneous
  Country: RO (occurrence: None)
  Receive Date: 20140613
  Receipt Date: 20140613
  Transmission Date: 20141212
  Serious: Yes (Death)
  Sender: FDA-Public Use
  Company Number: 201404120

PATIENT
  Sex: Male

DRUGS (1)
  1. EDEX (ALPROSTADIL) [Suspect]
     Indication: ANOMALOUS PULMONARY VENOUS CONNECTION

REACTIONS (2)
  - Off label use [None]
  - Cardiopulmonary failure [None]
